FAERS Safety Report 7568436-8 (Version None)
Quarter: 2011Q2

REPORT INFORMATION
  Report Type: 
  Country: None (occurrence: None)
  Receive Date: 20110617
  Receipt Date: 20110609
  Transmission Date: 20111010
  Serious: No
  Sender: FDA-Public Use
  Company Number: 201106023

PATIENT
  Sex: Male
  Weight: 81.6475 kg

DRUGS (1)
  1. TESTIM [Suspect]
     Indication: BLOOD TESTOSTERONE DECREASED
     Dosage: 1 IN 1 D, TRANSDERMAL
     Route: 062
     Dates: start: 20100601, end: 20101001

REACTIONS (1)
  - PROSTATE CANCER [None]
